FAERS Safety Report 16195654 (Version 8)
Quarter: 2020Q2

REPORT INFORMATION
  Report Type: Report from Study
  Country: CN (occurrence: CN)
  Receive Date: 20190415
  Receipt Date: 20200422
  Transmission Date: 20200713
  Serious: Yes (Hospitalization)
  Sender: FDA-Public Use
  Company Number: CN-ROCHE-2302168

PATIENT
  Age: 70 Year
  Sex: Male
  Weight: 63 kg

DRUGS (15)
  1. CEFPROZIL. [Concomitant]
     Active Substance: CEFPROZIL
     Indication: COUGH
     Route: 048
     Dates: start: 20190415, end: 20190415
  2. CEFPROZIL. [Concomitant]
     Active Substance: CEFPROZIL
     Indication: PYREXIA
     Route: 048
     Dates: start: 20181204, end: 20181210
  3. AMBROXOL HYDROCHLORIDE [Concomitant]
     Active Substance: AMBROXOL HYDROCHLORIDE
     Indication: COUGH
     Route: 048
     Dates: start: 20190109, end: 20190110
  4. ALBUMIN PREPARED FROM HUMAN PLASMA [Concomitant]
     Route: 042
     Dates: start: 20190524, end: 20190524
  5. LACTULOSE. [Concomitant]
     Active Substance: LACTULOSE
     Route: 048
     Dates: start: 20190524, end: 20190527
  6. AMLODIPINE [Concomitant]
     Active Substance: AMLODIPINE BESYLATE
     Route: 048
     Dates: start: 1998
  7. AMBROXOL HYDROCHLORIDE [Concomitant]
     Active Substance: AMBROXOL HYDROCHLORIDE
     Route: 065
     Dates: start: 20190524, end: 20190527
  8. ATEZOLIZUMAB. [Suspect]
     Active Substance: ATEZOLIZUMAB
     Indication: NON-SMALL CELL LUNG CANCER STAGE IV
     Dosage: DATE OF MOST RECENT DOSE OF ATEZOLIZUMAB PRIOR TO AE AND SAE ONSET WAS 19/MAR/2019.?ATEZOLIZUMAB WIL
     Route: 041
     Dates: start: 20180730
  9. FINASTERIDE. [Concomitant]
     Active Substance: FINASTERIDE
     Indication: DIABETES INSIPIDUS
     Route: 048
     Dates: start: 20190120, end: 20190121
  10. MEGESTROL ACETATE. [Concomitant]
     Active Substance: MEGESTROL ACETATE
     Dosage: 1 TABLET
     Route: 065
     Dates: start: 20190524, end: 20190527
  11. TORSEMIDE. [Concomitant]
     Active Substance: TORSEMIDE
     Route: 042
     Dates: start: 20190524, end: 20190524
  12. CALCIUM CARBONATE. [Concomitant]
     Active Substance: CALCIUM CARBONATE
  13. HYDROCORTISONE BUTYRATE. [Concomitant]
     Active Substance: HYDROCORTISONE BUTYRATE
     Indication: RASH
     Route: 062
     Dates: start: 20190128, end: 20190308
  14. AMBROXOL HYDROCHLORIDE [Concomitant]
     Active Substance: AMBROXOL HYDROCHLORIDE
     Indication: PYREXIA
     Route: 048
     Dates: start: 20190213, end: 20190213
  15. DOMPERIDONE [Concomitant]
     Active Substance: DOMPERIDONE
     Dosage: 1 TABLET
     Route: 048
     Dates: start: 20190524, end: 20190527

REACTIONS (1)
  - Leukocytosis [Recovered/Resolved]

NARRATIVE: CASE EVENT DATE: 20190409
